FAERS Safety Report 9002689 (Version 1)
Quarter: 2013Q1

REPORT INFORMATION
  Report Type: Spontaneous
  Country: US (occurrence: US)
  Receive Date: 20130107
  Receipt Date: 20130107
  Transmission Date: 20140127
  Serious: No
  Sender: FDA-Public Use
  Company Number: US-GLAXOSMITHKLINE-A0958020A

PATIENT
  Age: 50 Year
  Sex: Female
  Weight: 43.13 kg

DRUGS (10)
  1. BENLYSTA [Suspect]
     Indication: SYSTEMIC LUPUS ERYTHEMATOSUS
     Dosage: 480MG FOURTEEN TIMES PER DAY
     Route: 042
     Dates: start: 20111128
  2. PREDNISONE [Concomitant]
  3. ZYPREXA [Concomitant]
  4. LEXAPRO [Concomitant]
  5. WELLBUTRIN [Concomitant]
     Route: 048
  6. RESTORIL [Concomitant]
  7. MELOXICAM [Concomitant]
  8. ADVIL [Concomitant]
  9. ELECTROCONVULSIVE THERAPY [Concomitant]
  10. ANESTHESIA [Concomitant]

REACTIONS (5)
  - Pruritus [Recovered/Resolved]
  - Urticaria [Recovered/Resolved]
  - Headache [Not Recovered/Not Resolved]
  - Joint stiffness [Unknown]
  - Joint swelling [Unknown]
